FAERS Safety Report 24576928 (Version 1)
Quarter: 2024Q4

REPORT INFORMATION
  Report Type: Spontaneous
  Country: CH (occurrence: CH)
  Receive Date: 20241104
  Receipt Date: 20241104
  Transmission Date: 20250115
  Serious: Yes (Other)
  Sender: CSL BEHRING
  Company Number: CH-BEH-2024183436

PATIENT
  Weight: 73 kg

DRUGS (1)
  1. PRIVIGEN [Suspect]
     Active Substance: HUMAN IMMUNOGLOBULIN G
     Indication: Myasthenia gravis
     Route: 042

REACTIONS (2)
  - Tubulointerstitial nephritis [Unknown]
  - Therapy change [Unknown]
